FAERS Safety Report 6050047-7 (Version None)
Quarter: 2009Q1

REPORT INFORMATION
  Report Type: 
  Country: None (occurrence: None)
  Receive Date: 20090121
  Receipt Date: 20090107
  Transmission Date: 20090719
  Serious: Yes (Hospitalization)
  Sender: FDA-Public Use
  Company Number: SPV1-2009-00028

PATIENT
  Age: 65 Year
  Sex: Female
  Weight: 65.8 kg

DRUGS (13)
  1. PENTASA [Suspect]
     Indication: CROHN'S DISEASE
     Dosage: 1000 MG, DAILY, ORAL
     Route: 048
     Dates: start: 20080101
  2. GLUCOPHAGE [Suspect]
     Indication: DIABETES MELLITUS
     Dosage: MG, DAILY, ORAL
     Route: 048
     Dates: end: 20081201
  3. ALLERGA /01314202/ (FEXOFENADINE HYDROCHLORIDE) [Concomitant]
  4. FOLIC ACID [Concomitant]
  5. LEVOXYL [Concomitant]
  6. NEXIUM [Concomitant]
  7. PERCOCET /0086790/ (OXYCODONE HYDROCHLORIDE, PARACETAMOL) TABLET [Concomitant]
  8. STARLIX [Concomitant]
  9. ATENOLOL [Concomitant]
  10. LOPRIN (ACETYSALICYLIC ACID) [Concomitant]
  11. ZOCOR [Concomitant]
  12. LANTUS [Concomitant]
  13. BONIVA (BANDRONATE SODIUM) [Concomitant]

REACTIONS (7)
  - BETA HAEMOLYTIC STREPTOCOCCAL INFECTION [None]
  - MEDICATION RESIDUE [None]
  - OFF LABEL USE [None]
  - PULMONARY EMBOLISM [None]
  - PYODERMA GANGRENOSUM [None]
  - RENAL FAILURE [None]
  - VASCULITIS [None]
